FAERS Safety Report 6425493-X (Version None)
Quarter: 2009Q4

REPORT INFORMATION
  Report Type: 
  Country: None (occurrence: None)
  Receive Date: 20091029
  Receipt Date: 20091017
  Transmission Date: 20100525
  Serious: Yes (Other)
  Sender: FDA-Public Use
  Company Number: 2009AP004250

PATIENT
  Age: 39 Year
  Sex: Female

DRUGS (7)
  1. HALOPERIDOL [Suspect]
  2. BUPROPION HCL [Suspect]
  3. QUETIAPINE FUMARATE [Suspect]
  4. AMANTADINE HCL [Suspect]
     Indication: TARDIVE DYSKINESIA
     Dosage: 100 MG;BID;PO
     Route: 048
  5. VALPROATE SODIUM [Concomitant]
  6. LEVOTHYROXINE SODIUM [Concomitant]
  7. LISINOPRIL [Concomitant]

REACTIONS (9)
  - BLINDNESS [None]
  - CONFUSIONAL STATE [None]
  - CORNEAL DISORDER [None]
  - CORNEAL OEDEMA [None]
  - DIPLOPIA [None]
  - DRUG TOXICITY [None]
  - HALLUCINATION, VISUAL [None]
  - TARDIVE DYSKINESIA [None]
  - TRANSPLANT FAILURE [None]
